FAERS Safety Report 20493646 (Version 3)
Quarter: 2022Q1

REPORT INFORMATION
  Report Type: Spontaneous
  Country: CN (occurrence: CN)
  Receive Date: 20220221
  Receipt Date: 20220224
  Transmission Date: 20220423
  Serious: Yes (Other)
  Sender: FDA-Public Use
  Company Number: CN-SA-2022SA054763

PATIENT
  Age: 67 Year
  Sex: Male

DRUGS (2)
  1. OXALIPLATIN [Suspect]
     Active Substance: OXALIPLATIN
     Indication: Gallbladder cancer stage IV
     Dosage: UNK UNK, QCY
     Dates: start: 2019, end: 2019
  2. PACLITAXEL [Suspect]
     Active Substance: PACLITAXEL
     Indication: Gallbladder cancer stage IV
     Dosage: UNK UNK, QCY
     Dates: start: 2019, end: 2019

REACTIONS (5)
  - Neurotoxicity [Unknown]
  - Diarrhoea [Unknown]
  - Abdominal pain [Unknown]
  - Gamma-glutamyltransferase increased [Unknown]
  - Hypoaesthesia [Unknown]

NARRATIVE: CASE EVENT DATE: 20190101
